FAERS Safety Report 6614378-1 (Version None)
Quarter: 2010Q1

REPORT INFORMATION
  Report Type: 
  Country: None (occurrence: None)
  Receive Date: 20100304
  Receipt Date: 20100217
  Transmission Date: 20100710
  Serious: Yes (Death, Hospitalization)
  Sender: FDA-Public Use
  Company Number: US-BAXTER-2010BH003248

PATIENT
  Age: 73 Year
  Sex: Female

DRUGS (1)
  1. DIANEAL [Suspect]
     Indication: PERITONEAL DIALYSIS
     Route: 033
     Dates: start: 20070101, end: 20091101

REACTIONS (5)
  - ASTHENIA [None]
  - DEATH [None]
  - DECUBITUS ULCER [None]
  - DEMENTIA [None]
  - GALLBLADDER DISORDER [None]
